FAERS Safety Report 9870605 (Version 3)
Quarter: 2014Q1

REPORT INFORMATION
  Report Type: Report from Study
  Country: DE (occurrence: DE)
  Receive Date: 20140205
  Receipt Date: 20140314
  Transmission Date: 20141002
  Serious: Yes (Hospitalization)
  Sender: FDA-Public Use
  Company Number: PHHO2011DE14009

PATIENT
  Sex: 0

DRUGS (3)
  1. SOM230 [Suspect]
     Indication: NEUROENDOCRINE TUMOUR
     Dosage: 60 MG DAILY
     Dates: start: 20110921
  2. AFINITOR [Suspect]
     Indication: NEUROENDOCRINE TUMOUR
     Dosage: 10 MG, QD
     Route: 048
     Dates: start: 20110629
  3. ORAL BLOOD GLUCOSE LOWERING DRUGS [Concomitant]

REACTIONS (1)
  - Diabetes mellitus [Not Recovered/Not Resolved]
